FAERS Safety Report 24739185 (Version 1)
Quarter: 2024Q4

REPORT INFORMATION
  Report Type: Spontaneous
  Country: US (occurrence: US)
  Receive Date: 20241216
  Receipt Date: 20241216
  Transmission Date: 20250114
  Serious: No
  Sender: ALVOGEN
  Company Number: US-ALVOGEN-2024095310

PATIENT
  Sex: Female

DRUGS (5)
  1. FENTANYL [Suspect]
     Active Substance: FENTANYL
     Indication: Pain management
     Dosage: STRENGTH: 75 MCG
     Route: 062
  2. FENTANYL [Suspect]
     Active Substance: FENTANYL
     Indication: Pain management
     Dosage: NEW REFILL, STRENGTH: 75 MCG/HR, EXP. DATE: 31-MAY-2027
     Route: 062
     Dates: start: 20240805
  3. FENTANYL [Suspect]
     Active Substance: FENTANYL
     Indication: Pain management
     Dosage: STRENGTH: 75 MCG?EXPIRATION DATE: MAR-2025
     Route: 062
  4. PERCOCET [Suspect]
     Active Substance: ACETAMINOPHEN\OXYCODONE HYDROCHLORIDE
     Indication: Product used for unknown indication
     Dosage: PEACH AND ROUND TABLET, WITH IMPRINT AS 622 AND AN UNEXPLAINED SHAPE
  5. PERCOCET [Suspect]
     Active Substance: ACETAMINOPHEN\OXYCODONE HYDROCHLORIDE
     Indication: Product used for unknown indication
     Dosage: FLAT AND OVAL WHITE TABLET, WITH IMPRINTS M AND 522

REACTIONS (3)
  - Pruritus [Recovered/Resolved]
  - Rash [Unknown]
  - Wrong technique in device usage process [Unknown]

NARRATIVE: CASE EVENT DATE: 20240801
